FAERS Safety Report 5798233-5 (Version None)
Quarter: 2008Q3

REPORT INFORMATION
  Report Type: 
  Country: None (occurrence: None)
  Receive Date: 20080702
  Receipt Date: 20080624
  Transmission Date: 20090109
  Serious: Yes (Hospitalization, Other)
  Sender: FDA-Public Use
  Company Number: JP-JNJFOC-20060202537

PATIENT
  Sex: Female
  Weight: 50 kg

DRUGS (46)
  1. REMICADE [Suspect]
     Route: 042
  2. REMICADE [Suspect]
     Route: 042
  3. REMICADE [Suspect]
     Route: 042
  4. REMICADE [Suspect]
     Route: 042
  5. REMICADE [Suspect]
     Route: 042
  6. REMICADE [Suspect]
     Route: 042
  7. REMICADE [Suspect]
     Route: 042
  8. REMICADE [Suspect]
     Route: 042
  9. REMICADE [Suspect]
     Route: 042
  10. REMICADE [Suspect]
     Route: 042
  11. REMICADE [Suspect]
     Route: 042
  12. REMICADE [Suspect]
     Route: 042
  13. REMICADE [Suspect]
     Route: 042
  14. REMICADE [Suspect]
     Route: 042
  15. REMICADE [Suspect]
     Indication: RHEUMATOID ARTHRITIS
     Route: 042
  16. METHOTREXATE [Suspect]
     Route: 048
  17. METHOTREXATE [Suspect]
     Route: 048
  18. METHOTREXATE [Suspect]
     Indication: RHEUMATOID ARTHRITIS
     Route: 048
  19. PREDNISOLONE [Concomitant]
     Route: 048
  20. PREDNISOLONE [Concomitant]
     Route: 048
  21. PREDNISOLONE [Concomitant]
     Route: 048
  22. PREDNISOLONE [Concomitant]
     Route: 048
  23. PREDNISOLONE [Concomitant]
     Route: 048
  24. PREDNISOLONE [Concomitant]
     Route: 048
  25. PREDNISOLONE [Concomitant]
     Indication: RHEUMATOID ARTHRITIS
     Route: 048
  26. ADRENAL HORMONE PREPARATIONS [Concomitant]
     Indication: RHEUMATOID ARTHRITIS
  27. CYTOTEC [Concomitant]
     Indication: DRUG USE FOR UNKNOWN INDICATION
     Route: 048
  28. CANDESARTAN CILEXETIL [Concomitant]
     Route: 048
  29. FAMOTIDINE [Concomitant]
     Route: 048
  30. AMLODIPINE [Concomitant]
     Route: 048
  31. ANTIHISTAMINES [Concomitant]
     Route: 065
  32. ANTIHISTAMINES [Concomitant]
     Route: 065
  33. ANTIHISTAMINES [Concomitant]
     Route: 065
  34. ANTIHISTAMINES [Concomitant]
     Route: 065
  35. ANTIHISTAMINES [Concomitant]
     Route: 065
  36. ANTIHISTAMINES [Concomitant]
     Route: 065
  37. ANTIHISTAMINES [Concomitant]
     Route: 065
  38. ANTIHISTAMINES [Concomitant]
     Route: 065
  39. ANTIHISTAMINES [Concomitant]
     Route: 065
  40. ANTIHISTAMINES [Concomitant]
     Route: 065
  41. ANTIHISTAMINES [Concomitant]
     Route: 065
  42. ANTIHISTAMINES [Concomitant]
     Route: 065
  43. ANTIHISTAMINES [Concomitant]
     Indication: PROPHYLAXIS
     Route: 065
  44. ISALON [Concomitant]
     Indication: DRUG USE FOR UNKNOWN INDICATION
     Route: 048
  45. MOBIC [Concomitant]
     Indication: RHEUMATOID ARTHRITIS
     Route: 048
  46. INFREE S [Concomitant]
     Indication: RHEUMATOID ARTHRITIS
     Route: 048

REACTIONS (1)
  - BILIARY CIRRHOSIS PRIMARY [None]
